FAERS Safety Report 8212185-X (Version None)
Quarter: 2012Q1

REPORT INFORMATION
  Report Type: 
  Country: None (occurrence: None)
  Receive Date: 20120315
  Receipt Date: 20120309
  Transmission Date: 20120608
  Serious: Yes (Death)
  Sender: FDA-Public Use
  Company Number: GB-ROCHE-1037000

PATIENT
  Sex: Female

DRUGS (20)
  1. OMEPRAZOLE [Concomitant]
  2. GAVISCON ADVANCE (UNITED KINGDOM) [Concomitant]
  3. LANSOPRAZOLE [Concomitant]
  4. IPRATROPIUM BROMIDE [Concomitant]
     Dates: start: 20091214
  5. ACETAMINOPHEN AND CODEINE PHOSPHATE [Concomitant]
     Dates: start: 20100211
  6. ASPIRIN [Concomitant]
     Dates: start: 20100205
  7. CLOTRIMAZOLE [Concomitant]
     Dates: start: 20091214
  8. LANTUS [Concomitant]
     Dates: start: 20091214
  9. LATANOPROST [Concomitant]
     Dates: start: 20100205
  10. FUROSEMIDE [Concomitant]
     Dates: start: 20100205
  11. BISOPROLOL FUMARATE [Concomitant]
     Dates: start: 20100205
  12. LUCENTIS [Suspect]
     Indication: PRODUCT USED FOR UNKNOWN INDICATION
     Route: 050
  13. OLMESARTAN MEDOXOMIL [Concomitant]
     Dates: start: 20100205
  14. ISOSORBIDE MONONITRATE [Concomitant]
     Dates: start: 20100205
  15. ACTRAPID HUMAN [Concomitant]
  16. ACETAMINOPHEN [Concomitant]
     Dates: start: 20100205
  17. HYDROCORTISONE CREAM [Concomitant]
     Dates: start: 20091214
  18. LEVOTHYROXINE SODIUM [Concomitant]
     Dates: start: 20100205
  19. AMLODIPINE [Concomitant]
  20. CETRABEN EMOLLIENT CREAM (UNITED KINGDOM) [Concomitant]

REACTIONS (1)
  - DEATH [None]
